FAERS Safety Report 8509709-1 (Version None)
Quarter: 2012Q3

REPORT INFORMATION
  Report Type: 
  Country: None (occurrence: None)
  Receive Date: 20120713
  Receipt Date: 20120703
  Transmission Date: 20120928
  Serious: Yes (Hospitalization)
  Sender: FDA-Public Use
  Company Number: US-ABBOTT-12P-163-0953329-00

PATIENT
  Age: 49 Year
  Sex: Female

DRUGS (4)
  1. HUMIRA [Suspect]
     Indication: CROHN'S DISEASE
     Dates: start: 20111201
  2. PRILOSEC [Concomitant]
     Indication: GASTRIC ULCER
  3. HUMIRA [Suspect]
     Route: 058
  4. PREDNISONE TAB [Concomitant]
     Indication: PRODUCT USED FOR UNKNOWN INDICATION
     Dosage: 15MG DAILY ON TAPER,DOWN 5MG EVERY 2 WKS

REACTIONS (9)
  - INJECTION SITE PAPULE [None]
  - PAIN [None]
  - CENTRAL VENOUS CATHETERISATION [None]
  - DEEP VEIN THROMBOSIS [None]
  - INCORRECT DOSE ADMINISTERED [None]
  - VOMITING [None]
  - WEIGHT DECREASED [None]
  - DRUG INEFFECTIVE [None]
  - DIARRHOEA [None]
